FAERS Safety Report 24977726 (Version 3)
Quarter: 2025Q2

REPORT INFORMATION
  Report Type: Other
  Country: US (occurrence: US)
  Receive Date: 20250217
  Receipt Date: 20250505
  Transmission Date: 20250717
  Serious: No
  Sender: TRAVERE THERAPEUTICS
  Company Number: US-TRAVERE-2025TVT00199

PATIENT
  Age: 70 Year
  Sex: Female

DRUGS (10)
  1. FILSPARI [Suspect]
     Active Substance: SPARSENTAN
     Indication: IgA nephropathy
     Route: 048
     Dates: start: 20250207
  2. FUROSEMIDE [Concomitant]
     Active Substance: FUROSEMIDE
  3. IBANDRONATE SODIUM [Concomitant]
     Active Substance: IBANDRONATE SODIUM
  4. LIPITOR [Concomitant]
     Active Substance: ATORVASTATIN CALCIUM
  5. SODIUM BICARBONATE [Concomitant]
     Active Substance: SODIUM BICARBONATE
  6. TYLENOL [Concomitant]
     Active Substance: ACETAMINOPHEN
  7. ALPRAZOLAM [Concomitant]
     Active Substance: ALPRAZOLAM
  8. BRILINTA [Concomitant]
     Active Substance: TICAGRELOR
  9. ESCITALOPRAM OXALATE [Concomitant]
     Active Substance: ESCITALOPRAM OXALATE
  10. FARXIGA [Concomitant]
     Active Substance: DAPAGLIFLOZIN PROPANEDIOL

REACTIONS (6)
  - Blood pressure decreased [None]
  - Urine protein/creatinine ratio increased [Recovering/Resolving]
  - Proteinuria [Unknown]
  - Hypotension [Unknown]
  - Hyperkalaemia [Unknown]
  - Urine abnormality [None]

NARRATIVE: CASE EVENT DATE: 20250207
